FAERS Safety Report 4590596-1 (Version None)
Quarter: 2005Q1

REPORT INFORMATION
  Report Type: 
  Country: None (occurrence: None)
  Receive Date: 20050224
  Receipt Date: 20050208
  Transmission Date: 20050727
  Serious: Yes (Hospitalization, Other)
  Sender: FDA-Public Use
  Company Number: DE-GLAXOSMITHKLINE-D0045844A

PATIENT
  Age: 35 Year
  Sex: Female
  Weight: 62 kg

DRUGS (10)
  1. VIANI [Suspect]
     Indication: ASTHMA
     Route: 055
     Dates: start: 20020913, end: 20030910
  2. VIANI FORTE [Suspect]
     Indication: ASTHMA
     Route: 055
     Dates: start: 20040324
  3. BUDECORT 200 NOVOLIZER [Suspect]
     Indication: ASTHMA
     Dosage: 2PUFF TWICE PER DAY
     Route: 055
     Dates: start: 20010802, end: 20020208
  4. SYMBICORT [Suspect]
     Indication: ASTHMA
     Dosage: 1PUFF TWICE PER DAY
     Route: 055
     Dates: start: 20020218, end: 20020913
  5. BUDECORT 200 NOVOLIZER [Suspect]
     Dosage: 1PUFF TWICE PER DAY
     Route: 055
     Dates: start: 20030910, end: 20040324
  6. THEOPHYLLINE [Suspect]
     Indication: ASTHMA
     Route: 065
     Dates: start: 20050131, end: 20050201
  7. THEOPHYLLINE [Suspect]
     Indication: CONDITION AGGRAVATED
     Route: 065
     Dates: start: 20050131, end: 20050201
  8. ALBUTEROL [Concomitant]
     Route: 055
  9. CALCIUM FORTE [Concomitant]
     Route: 065
  10. VITAMIN D [Concomitant]
     Route: 030

REACTIONS (16)
  - ADRENAL CORTICAL INSUFFICIENCY [None]
  - ASTHMA [None]
  - CHEST DISCOMFORT [None]
  - CHILLS [None]
  - CONDITION AGGRAVATED [None]
  - DRUG INTOLERANCE [None]
  - DYSPNOEA [None]
  - HOT FLUSH [None]
  - HYPERHIDROSIS [None]
  - MOOD ALTERED [None]
  - MUSCLE SPASMS [None]
  - OSTEOPOROSIS POSTMENOPAUSAL [None]
  - PREMATURE MENOPAUSE [None]
  - SPUTUM PURULENT [None]
  - SYNCOPE [None]
  - TREMOR [None]
